FAERS Safety Report 11995392 (Version 1)
Quarter: 2016Q1

REPORT INFORMATION
  Report Type: Report from Study
  Country: US (occurrence: US)
  Receive Date: 20160203
  Receipt Date: 20160203
  Transmission Date: 20160526
  Serious: Yes (Hospitalization, Other)
  Sender: FDA-Public Use
  Company Number: US-GILEAD-2016-0196110

PATIENT

DRUGS (1)
  1. LEDIPASVIR/SOFOSBUVIR [Suspect]
     Active Substance: LEDIPASVIR\SOFOSBUVIR
     Indication: HEPATITIS C
     Dosage: UNK
     Route: 065

REACTIONS (19)
  - Blood pressure increased [Unknown]
  - Hypothyroidism [Unknown]
  - Neck pain [Unknown]
  - Back pain [Unknown]
  - Renal pain [Unknown]
  - Headache [Unknown]
  - Anxiety [Unknown]
  - Blood pressure abnormal [Unknown]
  - Cardiac disorder [Unknown]
  - Fatigue [Unknown]
  - Pain [Unknown]
  - Feeling abnormal [Unknown]
  - Hyperthyroidism [Unknown]
  - Arthralgia [Unknown]
  - Insomnia [Unknown]
  - Dyspnoea [Unknown]
  - Hepatic pain [Unknown]
  - Chest pain [Unknown]
  - Blood pressure fluctuation [Unknown]
